FAERS Safety Report 9311774 (Version 2)
Quarter: 2013Q2

REPORT INFORMATION
  Report Type: Spontaneous
  Country: JP (occurrence: JP)
  Receive Date: 20130528
  Receipt Date: 20130607
  Transmission Date: 20140414
  Serious: Yes (Other)
  Sender: FDA-Public Use
  Company Number: PHHY2013JP052121

PATIENT
  Sex: Male
  Weight: .18 kg

DRUGS (4)
  1. CICLOSPORIN [Suspect]
     Dosage: MATERNAL DOSE: 200MG PER DAY
     Route: 064
  2. PREDNISOLONE [Suspect]
     Dosage: MATERNAL DOSE: 15MG PER DAY TO 20MG PER DAY
     Route: 064
  3. HYDRALAZINE [Suspect]
     Dosage: MATERNAL DOSE: 30MG
     Route: 064
  4. METHYLDOPA [Suspect]
     Dosage: 750 MG MATERNAL DOSE
     Route: 064

REACTIONS (5)
  - Low birth weight baby [Unknown]
  - Apgar score abnormal [Unknown]
  - Premature baby [Unknown]
  - Foetal exposure during pregnancy [Unknown]
  - Exposure during breast feeding [Unknown]
